FAERS Safety Report 17782768 (Version 4)
Quarter: 2022Q2

REPORT INFORMATION
  Report Type: Spontaneous
  Country: US (occurrence: None)
  Receive Date: 20200514
  Receipt Date: 20220414
  Transmission Date: 20220720
  Serious: Yes (Hospitalization, Other)
  Sender: FDA-Public Use
  Company Number: 2020SE54239

PATIENT
  Age: 24171 Day
  Sex: Female
  Weight: 125.6 kg

DRUGS (80)
  1. FARXIGA [Suspect]
     Active Substance: DAPAGLIFLOZIN PROPANEDIOL
     Indication: Type 2 diabetes mellitus
     Route: 048
     Dates: start: 201508, end: 201707
  2. FARXIGA [Suspect]
     Active Substance: DAPAGLIFLOZIN PROPANEDIOL
     Indication: Weight decreased
     Route: 048
     Dates: start: 201508, end: 201707
  3. FARXIGA [Suspect]
     Active Substance: DAPAGLIFLOZIN PROPANEDIOL
     Indication: Hypotension
     Route: 048
     Dates: start: 201508, end: 201707
  4. FARXIGA [Suspect]
     Active Substance: DAPAGLIFLOZIN PROPANEDIOL
     Indication: Type 2 diabetes mellitus
     Route: 048
     Dates: start: 20150831
  5. FARXIGA [Suspect]
     Active Substance: DAPAGLIFLOZIN PROPANEDIOL
     Indication: Weight decreased
     Route: 048
     Dates: start: 20150831
  6. FARXIGA [Suspect]
     Active Substance: DAPAGLIFLOZIN PROPANEDIOL
     Indication: Hypotension
     Route: 048
     Dates: start: 20150831
  7. FARXIGA [Suspect]
     Active Substance: DAPAGLIFLOZIN PROPANEDIOL
     Indication: Type 2 diabetes mellitus
     Route: 048
     Dates: start: 20170303
  8. FARXIGA [Suspect]
     Active Substance: DAPAGLIFLOZIN PROPANEDIOL
     Indication: Weight decreased
     Route: 048
     Dates: start: 20170303
  9. FARXIGA [Suspect]
     Active Substance: DAPAGLIFLOZIN PROPANEDIOL
     Indication: Hypotension
     Route: 048
     Dates: start: 20170303
  10. FARXIGA [Suspect]
     Active Substance: DAPAGLIFLOZIN PROPANEDIOL
     Indication: Type 2 diabetes mellitus
     Dosage: 10.0MG UNKNOWN
     Route: 048
     Dates: start: 20150831, end: 20170705
  11. FARXIGA [Suspect]
     Active Substance: DAPAGLIFLOZIN PROPANEDIOL
     Indication: Weight decreased
     Dosage: 10.0MG UNKNOWN
     Route: 048
     Dates: start: 20150831, end: 20170705
  12. FARXIGA [Suspect]
     Active Substance: DAPAGLIFLOZIN PROPANEDIOL
     Indication: Hypotension
     Dosage: 10.0MG UNKNOWN
     Route: 048
     Dates: start: 20150831, end: 20170705
  13. FUROSEMIDE [Concomitant]
     Active Substance: FUROSEMIDE
     Route: 065
  14. ATORVASTATIN [Concomitant]
     Active Substance: ATORVASTATIN
     Route: 065
  15. CETIRIZINE [Concomitant]
     Active Substance: CETIRIZINE HYDROCHLORIDE
     Route: 065
  16. CARVEDILOL [Concomitant]
     Active Substance: CARVEDILOL
     Route: 065
  17. MINOXIDIL [Concomitant]
     Active Substance: MINOXIDIL
     Route: 065
  18. SPIRONOLACTONE [Concomitant]
     Active Substance: SPIRONOLACTONE
     Route: 065
  19. LISINOPRIL [Concomitant]
     Active Substance: LISINOPRIL
     Route: 065
  20. NOVOLIN NOS [Concomitant]
     Active Substance: INSULIN HUMAN
     Route: 065
  21. CALCITRIOL [Concomitant]
     Active Substance: CALCITRIOL
     Route: 065
  22. GABAPENTIN [Concomitant]
     Active Substance: GABAPENTIN
     Route: 065
  23. HYDRALAZINE [Concomitant]
     Active Substance: HYDRALAZINE HYDROCHLORIDE
     Route: 065
  24. VITAMIN D2 [Concomitant]
     Active Substance: ERGOCALCIFEROL
     Route: 065
  25. ISOSORBIDE MONONITRATE [Concomitant]
     Active Substance: ISOSORBIDE MONONITRATE
     Route: 065
  26. CEFUROXIME [Concomitant]
     Active Substance: CEFUROXIME
  27. KETOCONAZOLE [Concomitant]
     Active Substance: KETOCONAZOLE
  28. NORVASC [Concomitant]
     Active Substance: AMLODIPINE BESYLATE
  29. OXYBUTYNIN [Concomitant]
     Active Substance: OXYBUTYNIN
  30. ASPIRIN [Concomitant]
     Active Substance: ASPIRIN
  31. ZANTAC [Concomitant]
     Active Substance: RANITIDINE HYDROCHLORIDE
  32. ULTRAM [Concomitant]
     Active Substance: TRAMADOL HYDROCHLORIDE
     Dates: start: 20170503
  33. PERCOCET [Concomitant]
     Active Substance: ACETAMINOPHEN\OXYCODONE HYDROCHLORIDE
     Dates: start: 20170503
  34. TOPAMAX [Concomitant]
     Active Substance: TOPIRAMATE
     Dates: start: 20170503
  35. ELIQUIS [Concomitant]
     Active Substance: APIXABAN
     Dates: start: 20170503
  36. LYRICA [Concomitant]
     Active Substance: PREGABALIN
     Dates: start: 20170404
  37. NOVOLIN NOS [Concomitant]
     Active Substance: INSULIN HUMAN
     Dates: start: 20161221
  38. FLONASE [Concomitant]
     Active Substance: FLUTICASONE PROPIONATE
     Dates: start: 20161221
  39. BYSTOLIC [Concomitant]
     Active Substance: NEBIVOLOL HYDROCHLORIDE
     Dates: start: 20161221
  40. AZELASTINE [Concomitant]
     Active Substance: AZELASTINE
     Dates: start: 20161221
  41. CALCITONIN [Concomitant]
     Active Substance: CALCITONIN
     Dates: start: 20161221
  42. CEPHALEXIN [Concomitant]
     Active Substance: CEPHALEXIN
     Dates: start: 20161221
  43. BUMETANIDE [Concomitant]
     Active Substance: BUMETANIDE
     Dates: start: 20161221
  44. RESTASIS [Concomitant]
     Active Substance: CYCLOSPORINE
     Dates: start: 20161221
  45. TESSALON [Concomitant]
     Active Substance: BENZONATATE
     Dates: start: 20161221
  46. COLACE [Concomitant]
     Active Substance: DOCUSATE SODIUM
     Dates: start: 20161221
  47. TERBINAFINE HYDROCHLORIDE [Concomitant]
     Active Substance: TERBINAFINE HYDROCHLORIDE
     Dates: start: 20161221
  48. MYRBETRIQ [Concomitant]
     Active Substance: MIRABEGRON
     Dates: start: 20161221
  49. CLONIDINE HYDROCHLORIDE [Concomitant]
     Active Substance: CLONIDINE HYDROCHLORIDE
     Dates: start: 20161221
  50. SIMVASTATIN [Concomitant]
     Active Substance: SIMVASTATIN
     Dates: start: 20161221
  51. ULORIC [Concomitant]
     Active Substance: FEBUXOSTAT
     Dates: start: 20161221
  52. ENALAPRI L MALEATE [Concomitant]
     Dates: start: 20161221
  53. COLCHICINE [Concomitant]
     Active Substance: COLCHICINE
     Dates: start: 20161221
  54. CLOPIDOGREL [Concomitant]
     Active Substance: CLOPIDOGREL BISULFATE
     Dates: start: 20161221
  55. INDOMETHACIN [Concomitant]
     Active Substance: INDOMETHACIN
  56. DIPHENOXYLATE [Concomitant]
     Active Substance: DIPHENOXYLATE
  57. ALLOPURINOL [Concomitant]
     Active Substance: ALLOPURINOL
  58. METRONIDAZOLE [Concomitant]
     Active Substance: METRONIDAZOLE
  59. BACLOFEN [Concomitant]
     Active Substance: BACLOFEN
  60. BACTRIM [Concomitant]
     Active Substance: SULFAMETHOXAZOLE\TRIMETHOPRIM
  61. ZITHROMAX [Concomitant]
     Active Substance: AZITHROMYCIN DIHYDRATE
  62. MONTELUKAST [Concomitant]
     Active Substance: MONTELUKAST SODIUM
  63. CLONAZEPAM [Concomitant]
     Active Substance: CLONAZEPAM
  64. DYSTOLIC [Concomitant]
  65. MAGNESIUM OXIDE [Concomitant]
     Active Substance: MAGNESIUM OXIDE
  66. DULOXETINE HYDRCHLORIDE [Concomitant]
  67. VITAMIN C [Concomitant]
     Active Substance: ASCORBIC ACID
     Route: 065
  68. FLEXERIL [Concomitant]
     Active Substance: CYCLOBENZAPRINE HYDROCHLORIDE
  69. LORTAB [Concomitant]
     Active Substance: ACETAMINOPHEN\HYDROCODONE BITARTRATE
  70. NIACIN [Concomitant]
     Active Substance: NIACIN
  71. OXYBUTYNIN CHLORIDE [Concomitant]
     Active Substance: OXYBUTYNIN CHLORIDE
  72. CEFDINIR [Concomitant]
     Active Substance: CEFDINIR
  73. MORPHINE [Concomitant]
     Active Substance: MORPHINE
  74. SODIUM CHLORIDE [Concomitant]
     Active Substance: SODIUM CHLORIDE
  75. LACTATED RINGERS SOLUTION [Concomitant]
     Active Substance: CALCIUM CHLORIDE\POTASSIUM CHLORIDE\SODIUM CHLORIDE\SODIUM LACTATE
  76. NAPROXEN [Concomitant]
     Active Substance: NAPROXEN
  77. CODEINE [Concomitant]
     Active Substance: CODEINE
  78. IRON [Concomitant]
     Active Substance: IRON
  79. KAYEXALATE [Concomitant]
     Active Substance: SODIUM POLYSTYRENE SULFONATE
  80. ZOSYN [Concomitant]
     Active Substance: PIPERACILLIN SODIUM\TAZOBACTAM SODIUM

REACTIONS (8)
  - Fournier^s gangrene [Unknown]
  - Abscess limb [Unknown]
  - Necrotising myositis [Unknown]
  - Abscess [Unknown]
  - Necrotising soft tissue infection [Unknown]
  - Necrotising fasciitis [Unknown]
  - Rectal abscess [Unknown]
  - Perirectal abscess [Unknown]

NARRATIVE: CASE EVENT DATE: 20161023
